FAERS Safety Report 9475581 (Version 6)
Quarter: 2013Q4

REPORT INFORMATION
  Report Type: Spontaneous
  Country: US (occurrence: None)
  Receive Date: 20130821
  Receipt Date: 20131217
  Transmission Date: 20140711
  Serious: Yes (Hospitalization)
  Sender: FDA-Public Use
  Company Number: US-000758

PATIENT
  Age: 57 Year
  Sex: Male

DRUGS (15)
  1. GATTEX [Suspect]
     Indication: SHORT-BOWEL SYNDROME
     Dosage: STREN/VOLUM: 0.27 ML
     Route: 058
     Dates: start: 20130801
  2. SYMBICORT [Concomitant]
  3. HYDROCODONE [Concomitant]
  4. ONDANSETRON [Concomitant]
  5. HYDROMORPHONE [Concomitant]
  6. CITALOPRAM [Concomitant]
  7. DIPHENOXYLATE HCL AND ATROPINE SULFATE [Concomitant]
  8. BACLOFEN [Concomitant]
  9. PANTOPRAZOLE [Concomitant]
  10. QUETIAPINE FUMARATE [Concomitant]
  11. AMITRIPTYLINE [Concomitant]
  12. TRAMADOL [Concomitant]
  13. SOLUTIONS FOR PARENTERAL NUTRITION [Concomitant]
  14. SODIUM CHLORIDE [Concomitant]
  15. TAMSULOSIN [Concomitant]

REACTIONS (10)
  - Abdominal pain [None]
  - Pyrexia [None]
  - Gastrointestinal stoma complication [None]
  - Hernia [None]
  - Incisional hernia [None]
  - Pulmonary oedema [None]
  - Staphylococcal infection [None]
  - Device related infection [None]
  - Fluid overload [None]
  - Cholecystectomy [None]
